FAERS Safety Report 4784157-9 (Version None)
Quarter: 2005Q3

REPORT INFORMATION
  Report Type: 
  Country: None (occurrence: None)
  Receive Date: 20050930
  Receipt Date: 20050809
  Transmission Date: 20060218
  Serious: Yes (Hospitalization, Other)
  Sender: FDA-Public Use
  Company Number: US-GLAXOSMITHKLINE-A0569508A

PATIENT
  Age: 42 Year
  Sex: Female
  Weight: 64.1 kg

DRUGS (2)
  1. FLOVENT [Suspect]
     Indication: ASTHMA
     Dosage: 2SPR TWICE PER DAY
     Route: 055
     Dates: start: 20050501, end: 20050801
  2. XOLAIR [Concomitant]

REACTIONS (3)
  - ASTHMA [None]
  - DRUG INEFFECTIVE [None]
  - PHARMACEUTICAL PRODUCT COMPLAINT [None]
